FAERS Safety Report 15653965 (Version 1)
Quarter: 2018Q4

REPORT INFORMATION
  Report Type: Other
  Country: ES (occurrence: ES)
  Receive Date: 20181125
  Receipt Date: 20181125
  Transmission Date: 20190205
  Serious: Yes (Other)
  Sender: FDA-Public Use
  Company Number: ES-APOTEX-2018AP025052

PATIENT
  Age: 26 Year
  Sex: Female

DRUGS (2)
  1. BOOSTRIX POLIO [Suspect]
     Active Substance: DIPHTHERIA AND TETANUS TOXOIDS AND ACELLULAR PERTUSSIS ADSORBED AND INACTIVATED POLIOVIRUS VACCINE
     Indication: PREGNANCY
     Dosage: 1 DOSIS
     Route: 030
     Dates: start: 20180228
  2. PARACETAMOL [Suspect]
     Active Substance: ACETAMINOPHEN
     Indication: PYREXIA
     Dosage: 1 DF, UNK
     Route: 065
     Dates: start: 20180228, end: 20180228

REACTIONS (1)
  - Foetal death [Unknown]

NARRATIVE: CASE EVENT DATE: 20180313
